FAERS Safety Report 21715724 (Version 2)
Quarter: 2022Q4

REPORT INFORMATION
  Report Type: Report from Study
  Country: US (occurrence: US)
  Receive Date: 20221212
  Receipt Date: 20221221
  Transmission Date: 20230113
  Serious: No
  Sender: FDA-Public Use
  Company Number: US-ABBVIE-4204273

PATIENT
  Age: 34 Year
  Sex: Male

DRUGS (1)
  1. HUMIRA [Suspect]
     Active Substance: ADALIMUMAB
     Indication: Colitis ulcerative
     Dosage: DOSE STRENGTH 40 MG, CITRATE FREE, ONSET DATE FOR BROKEN HAND, STOMACH ACHE AND HUMIRA SHOT WORE ...
     Route: 058
     Dates: start: 202208

REACTIONS (6)
  - Gastrointestinal sounds abnormal [Unknown]
  - Unevaluable event [Unknown]
  - Eczema [Unknown]
  - Therapeutic response shortened [Unknown]
  - Abdominal pain upper [Recovering/Resolving]
  - Hand fracture [Recovering/Resolving]

NARRATIVE: CASE EVENT DATE: 20220801
